FAERS Safety Report 9226743 (Version 1)
Quarter: 2013Q2

REPORT INFORMATION
  Report Type: Spontaneous
  Country: US (occurrence: None)
  Receive Date: 20130410
  Receipt Date: 20130410
  Transmission Date: 20140414
  Serious: Yes (Hospitalization)
  Sender: FDA-Public Use
  Company Number: None

PATIENT
  Age: 79 Year
  Sex: Male
  Weight: 111.5 kg

DRUGS (10)
  1. PRADAXA [Suspect]
     Indication: PULMONARY EMBOLISM
     Dosage: CHONIC X 4 MONTHS?150MG BID PO
     Route: 048
  2. LASIX [Concomitant]
  3. PREDNISONE [Concomitant]
  4. KCL [Concomitant]
  5. MVI [Concomitant]
  6. OMEPRAZOLE [Concomitant]
  7. ZOFRAN [Concomitant]
  8. LOSARTAN [Concomitant]
  9. FERROUS SULFATE [Concomitant]
  10. NORCO [Concomitant]

REACTIONS (3)
  - Anaemia [None]
  - Gastrointestinal haemorrhage [None]
  - Ileal ulcer [None]
